FAERS Safety Report 6309782-5 (Version None)
Quarter: 2009Q3

REPORT INFORMATION
  Report Type: 
  Country: None (occurrence: None)
  Receive Date: 20090814
  Receipt Date: 20090806
  Transmission Date: 20100115
  Serious: Yes (Death, Other)
  Sender: FDA-Public Use
  Company Number: CO-ELI_LILLY_AND_COMPANY-CO200908002498

PATIENT
  Age: 65 Year
  Sex: Female

DRUGS (11)
  1. FORTEO [Suspect]
     Indication: OSTEOPOROSIS
     Dosage: 20 UG, DAILY (1/D)
     Route: 058
     Dates: start: 20090606
  2. CALCIUM W/VITAMIN D NOS [Concomitant]
     Dosage: UNK, UNKNOWN
     Route: 065
  3. CIPROFLOXACIN [Concomitant]
     Dosage: UNK, UNKNOWN
     Route: 065
  4. HYDROCODONE [Concomitant]
     Dosage: UNK, UNKNOWN
     Route: 065
  5. CLONAZEPAM [Concomitant]
     Dosage: UNK, UNKNOWN
     Route: 065
  6. TRAMADOL [Concomitant]
     Dosage: UNK, UNKNOWN
     Route: 065
  7. ACETAMINOPHEN [Concomitant]
     Dosage: UNK, UNKNOWN
     Route: 065
  8. FUROSEMIDE [Concomitant]
     Dosage: UNK, UNKNOWN
     Route: 065
  9. SPIRONOLACTONE [Concomitant]
     Dosage: UNK, UNKNOWN
     Route: 065
  10. DIGOXIN [Concomitant]
     Dosage: UNK, UNKNOWN
     Route: 065
  11. MIACALCIN [Concomitant]
     Indication: SUPPLEMENTATION THERAPY
     Dosage: UNK, UNKNOWN
     Route: 065

REACTIONS (2)
  - ACUTE MYOCARDIAL INFARCTION [None]
  - PULMONARY OEDEMA [None]
